FAERS Safety Report 4415015-7 (Version None)
Quarter: 2004Q3

REPORT INFORMATION
  Report Type: 
  Country: None (occurrence: None)
  Receive Date: 20040804
  Receipt Date: 20040616
  Transmission Date: 20050211
  Serious: Yes (Hospitalization)
  Sender: FDA-Public Use
  Company Number: US-ROCHE-371413

PATIENT
  Age: 76 Year
  Sex: Male
  Weight: 99.8 kg

DRUGS (5)
  1. PEGASYS [Suspect]
     Dosage: ROUTE REPORTED AS INJECTABLE.
     Route: 050
     Dates: start: 20040409, end: 20040614
  2. COPEGUS [Suspect]
     Dosage: 3 IN THE MORNING AND 3 AT NIGHT.
     Route: 048
     Dates: start: 20040409, end: 20040614
  3. LANTUS [Concomitant]
  4. MICRONASE [Concomitant]
     Route: 048
  5. BLOOD PRESSURE MEDICATION NOS [Concomitant]
     Indication: HYPERTENSION
     Route: 065

REACTIONS (15)
  - CARDIAC FAILURE CONGESTIVE [None]
  - DIFFICULTY IN WALKING [None]
  - DIZZINESS [None]
  - FEELING ABNORMAL [None]
  - HYPERGLYCAEMIA [None]
  - IRRITABILITY [None]
  - LIVER SCAN ABNORMAL [None]
  - PRURITUS [None]
  - PYREXIA [None]
  - RASH [None]
  - RED BLOOD CELL COUNT DECREASED [None]
  - STOMATITIS [None]
  - THYROID FUNCTION TEST ABNORMAL [None]
  - VISUAL BRIGHTNESS [None]
  - WHITE BLOOD CELL COUNT DECREASED [None]
